FAERS Safety Report 19597462 (Version 1)
Quarter: 2021Q3

REPORT INFORMATION
  Report Type: Spontaneous
  Country: US (occurrence: US)
  Receive Date: 20210723
  Receipt Date: 20210723
  Transmission Date: 20211014
  Serious: No
  Sender: FDA-Public Use
  Company Number: US-BAUSCH-BL-2021-024560

PATIENT
  Age: 79 Year
  Sex: Female

DRUGS (2)
  1. DORZOLAMIDE HYDROCHLORIDE OPHTHALMIC SOLUTION 2% [Suspect]
     Active Substance: DORZOLAMIDE HYDROCHLORIDE
     Indication: GLAUCOMA
     Dosage: ONE DROP IN THE LEFT EYE TWICE DAILY
     Route: 047
     Dates: start: 202011
  2. DORZOLAMIDE EYE DROPS [Suspect]
     Active Substance: DORZOLAMIDE
     Indication: GLAUCOMA
     Route: 047

REACTIONS (1)
  - Vitreous floaters [Recovered/Resolved]
